FAERS Safety Report 4933627-9 (Version None)
Quarter: 2006Q1

REPORT INFORMATION
  Report Type: 
  Country: None (occurrence: None)
  Receive Date: 20060306
  Receipt Date: 20060221
  Transmission Date: 20060701
  Serious: Yes (Death)
  Sender: FDA-Public Use
  Company Number: JP-ROCHE-437877

PATIENT
  Age: 40 Year
  Sex: Male
  Weight: 72 kg

DRUGS (4)
  1. TAMIFLU [Suspect]
     Route: 048
     Dates: start: 20060218, end: 20060219
  2. PL [Concomitant]
     Route: 048
     Dates: start: 20060218, end: 20060219
  3. BRUFEN [Concomitant]
     Route: 048
     Dates: start: 20060218, end: 20060219
  4. MUCOSTA [Concomitant]
     Route: 048
     Dates: start: 20060218, end: 20060219

REACTIONS (14)
  - BLOOD CREATININE INCREASED [None]
  - BLOOD PRESSURE DECREASED [None]
  - DIARRHOEA [None]
  - DRUG HYPERSENSITIVITY [None]
  - GASTROINTESTINAL HAEMORRHAGE [None]
  - LEUKOPENIA [None]
  - LIVER DISORDER [None]
  - MULTI-ORGAN FAILURE [None]
  - RASH [None]
  - RENAL DISORDER [None]
  - RENAL FAILURE ACUTE [None]
  - RESPIRATORY ARREST [None]
  - SKIN DISCOLOURATION [None]
  - THROMBOCYTOPENIA [None]
